FAERS Safety Report 9744615 (Version 2)
Quarter: 2014Q1

REPORT INFORMATION
  Report Type: Report from Study
  Country: US (occurrence: US)
  Receive Date: 20131210
  Receipt Date: 20140211
  Transmission Date: 20141002
  Serious: Yes (Hospitalization, Other)
  Sender: FDA-Public Use
  Company Number: US-ABBVIE-13P-163-1176839-00

PATIENT
  Sex: Male

DRUGS (6)
  1. HUMIRA [Suspect]
     Indication: COLITIS ULCERATIVE
     Route: 058
     Dates: start: 20131025
  2. HUMIRA [Suspect]
     Route: 058
  3. HUMIRA [Suspect]
     Route: 058
  4. SOTALOL [Concomitant]
     Indication: ARRHYTHMIA
  5. SOTALOL [Concomitant]
     Indication: VENTRICULAR FIBRILLATION
  6. WARFARIN [Concomitant]
     Indication: MITRAL VALVE REPLACEMENT

REACTIONS (3)
  - Haematochezia [Unknown]
  - Dehydration [Unknown]
  - Clostridium difficile infection [Recovering/Resolving]
